FAERS Safety Report 10448320 (Version 1)
Quarter: 2014Q3

REPORT INFORMATION
  Report Type: Report from Study
  Country: FR (occurrence: FR)
  Receive Date: 20140911
  Receipt Date: 20140911
  Transmission Date: 20150326
  Serious: Yes (Other)
  Sender: FDA-Public Use
  Company Number: PHHO2014FR012080

PATIENT

DRUGS (4)
  1. PARACETAMOL [Suspect]
     Active Substance: ACETAMINOPHEN
     Dosage: PRN
     Route: 048
     Dates: start: 20140721
  2. VITAMIN A [Concomitant]
     Active Substance: VITAMIN A
     Dosage: STARTED BEFORE INCLUSION
  3. CETIRIZINE [Concomitant]
     Active Substance: CETIRIZINE HYDROCHLORIDE
     Dosage: 10 MG, UNK
     Route: 048
     Dates: start: 20140808, end: 20140815
  4. BKM120 [Suspect]
     Active Substance: BUPARLISIB HYDROCHLORIDE
     Indication: THYROID CANCER
     Dosage: 100 MG, UNK
     Dates: start: 20140623

REACTIONS (1)
  - Alanine aminotransferase increased [Not Recovered/Not Resolved]

NARRATIVE: CASE EVENT DATE: 20140818
